FAERS Safety Report 21880185 (Version 1)
Quarter: 2023Q1

REPORT INFORMATION
  Report Type: Spontaneous
  Country: FR (occurrence: FR)
  Receive Date: 20230118
  Receipt Date: 20230118
  Transmission Date: 20230417
  Serious: Yes (Hospitalization, Other)
  Sender: FDA-Public Use
  Company Number: None

PATIENT
  Sex: Female

DRUGS (16)
  1. PRAMIPEXOLE [Suspect]
     Active Substance: PRAMIPEXOLE
     Indication: Parkinson^s disease
     Dosage: UNK UKN, UNK
     Dates: end: 201303
  2. PRAMIPEXOLE [Suspect]
     Active Substance: PRAMIPEXOLE
     Dosage: UNK UKN, (REINTRODUCED)
     Dates: start: 201306
  3. PRAMIPEXOLE [Suspect]
     Active Substance: PRAMIPEXOLE
     Dosage: UNK UKN, (DOSE INCREASED)
     Dates: start: 20130719, end: 20130720
  4. PRAMIPEXOLE [Suspect]
     Active Substance: PRAMIPEXOLE
     Dosage: UNK UKN, (REINTRODUCED)
     Dates: start: 20130721, end: 20130724
  5. APOMORPHINE [Suspect]
     Active Substance: APOMORPHINE
     Indication: Product used for unknown indication
     Dates: start: 201303
  6. APOMORPHINE [Suspect]
     Active Substance: APOMORPHINE
     Dosage: UNK (DOSE INCREASED)
     Dates: start: 201306
  7. APOMORPHINE [Suspect]
     Active Substance: APOMORPHINE
     Dosage: UNK (REINTRODUCED)
     Dates: start: 20130724
  8. BENSERAZIDE HYDROCHLORIDE\LEVODOPA [Suspect]
     Active Substance: BENSERAZIDE HYDROCHLORIDE\LEVODOPA
     Indication: Parkinson^s disease
     Dosage: UNK UKN, UNK
     Dates: end: 201303
  9. BENSERAZIDE HYDROCHLORIDE\LEVODOPA [Suspect]
     Active Substance: BENSERAZIDE HYDROCHLORIDE\LEVODOPA
     Dosage: UNK UKN, (REINTRODUCED)
     Dates: start: 201306
  10. BENSERAZIDE HYDROCHLORIDE\LEVODOPA [Suspect]
     Active Substance: BENSERAZIDE HYDROCHLORIDE\LEVODOPA
     Dosage: UNK (DOSE INCREASED)
     Dates: start: 20130719, end: 20130720
  11. BENSERAZIDE HYDROCHLORIDE\LEVODOPA [Suspect]
     Active Substance: BENSERAZIDE HYDROCHLORIDE\LEVODOPA
     Dosage: UNK UKN, (REINTRODUCED)
     Dates: start: 20130721, end: 20130724
  12. STALEVO [Suspect]
     Active Substance: CARBIDOPA\ENTACAPONE\LEVODOPA
     Indication: Parkinson^s disease
     Dates: end: 201303
  13. STALEVO [Suspect]
     Active Substance: CARBIDOPA\ENTACAPONE\LEVODOPA
     Dosage: UNK UKN, (REINTRODUCED)
     Dates: start: 201306
  14. STALEVO [Suspect]
     Active Substance: CARBIDOPA\ENTACAPONE\LEVODOPA
     Dosage: UNK UKN, (DOSE INCREASED)
     Dates: start: 20130719, end: 20130720
  15. STALEVO [Suspect]
     Active Substance: CARBIDOPA\ENTACAPONE\LEVODOPA
     Dosage: UNK UKN, (REINTRODUCED)
     Dates: start: 20130721, end: 20130724
  16. METFORMIN\SITAGLIPTIN [Concomitant]
     Active Substance: METFORMIN\SITAGLIPTIN
     Indication: Diabetes mellitus
     Dosage: TWICE DAILY

REACTIONS (4)
  - Muscle spasms [Not Recovered/Not Resolved]
  - Intestinal obstruction [Unknown]
  - Withdrawal syndrome [Unknown]
  - Weight decreased [Not Recovered/Not Resolved]

NARRATIVE: CASE EVENT DATE: 20130301
